FAERS Safety Report 25698627 (Version 2)
Quarter: 2025Q3

REPORT INFORMATION
  Report Type: Spontaneous
  Country: US (occurrence: US)
  Receive Date: 20250819
  Receipt Date: 20250829
  Transmission Date: 20251020
  Serious: Yes (Hospitalization)
  Sender: GE HEALTHCARE
  Company Number: US-GE HEALTHCARE-2025CSU010866

PATIENT
  Age: 67 Year
  Sex: Male

DRUGS (1)
  1. OMNIPAQUE [Suspect]
     Active Substance: IOHEXOL
     Indication: Diagnostic procedure
     Route: 014
     Dates: start: 20250729, end: 20250729

REACTIONS (2)
  - Arthritis bacterial [Recovering/Resolving]
  - Alpha haemolytic streptococcal infection [Recovering/Resolving]

NARRATIVE: CASE EVENT DATE: 20250729
